FAERS Safety Report 17359024 (Version 3)
Quarter: 2020Q1

REPORT INFORMATION
  Report Type: Report from Study
  Country: None (occurrence: US)
  Receive Date: 20200202
  Receipt Date: 20200218
  Transmission Date: 20200409
  Serious: Yes (Hospitalization, Other)
  Sender: FDA-Public Use
  Company Number: US-ABBVIE-20K-163-3252677-00

PATIENT
  Age: 66 Year
  Sex: Male

DRUGS (1)
  1. DUOPA [Suspect]
     Active Substance: CARBIDOPA\LEVODOPA
     Indication: PRODUCT USED FOR UNKNOWN INDICATION
     Route: 050
     Dates: start: 20151112

REACTIONS (7)
  - Drug ineffective [Unknown]
  - Dyskinesia [Unknown]
  - Rehabilitation therapy [Unknown]
  - Gait disturbance [Unknown]
  - Hypoaesthesia [Unknown]
  - Device issue [Unknown]
  - Unintentional medical device removal [Unknown]

NARRATIVE: CASE EVENT DATE: 20200205
